FAERS Safety Report 6852782-7 (Version None)
Quarter: 2010Q3

REPORT INFORMATION
  Report Type: 
  Country: None (occurrence: None)
  Receive Date: 20100717
  Receipt Date: 20071123
  Transmission Date: 20110219
  Serious: No
  Sender: FDA-Public Use
  Company Number: US-PFIZER INC-2007100086

PATIENT
  Age: 47 Year
  Sex: Female
  Weight: 100 kg

DRUGS (2)
  1. CHANTIX [Suspect]
     Indication: SMOKING CESSATION THERAPY
     Dates: start: 20071119
  2. ACETYLSALICYLIC ACID [Concomitant]

REACTIONS (3)
  - ABNORMAL DREAMS [None]
  - FLATULENCE [None]
  - SLEEP DISORDER [None]
